FAERS Safety Report 19827787 (Version 2)
Quarter: 2021Q3

REPORT INFORMATION
  Report Type: Spontaneous
  Country: JP (occurrence: JP)
  Receive Date: 20210914
  Receipt Date: 20210921
  Transmission Date: 20211014
  Serious: Yes (Hospitalization)
  Sender: FDA-Public Use
  Company Number: JP-ASTRAZENECA-2021A721510

PATIENT

DRUGS (1)
  1. FORXIGA [Suspect]
     Active Substance: DAPAGLIFLOZIN
     Indication: CHRONIC KIDNEY DISEASE
     Dosage: DOSE UNKNOWN
     Route: 048

REACTIONS (3)
  - Wrong technique in product usage process [Unknown]
  - Hepatic enzyme decreased [Unknown]
  - Cholecystitis [Unknown]

NARRATIVE: CASE EVENT DATE: 2021
